FAERS Safety Report 15905169 (Version 2)
Quarter: 2019Q1

REPORT INFORMATION
  Report Type: Spontaneous
  Country: IT (occurrence: IT)
  Receive Date: 20190204
  Receipt Date: 20190304
  Transmission Date: 20190417
  Serious: Yes (Death, Life-Threatening, Hospitalization, Other)
  Sender: FDA-Public Use
  Company Number: IT-009507513-1902ITA000222

PATIENT
  Age: 80 Year
  Sex: Male
  Weight: 71 kg

DRUGS (2)
  1. ENOXAPARIN SODIUM. [Concomitant]
     Active Substance: ENOXAPARIN SODIUM
     Indication: PULMONARY EMBOLISM
     Dosage: 6000 INTERNATIONAL UNIT, TWICE DAILY (BID)
     Route: 058
     Dates: end: 20180219
  2. PEMBROLIZUMAB. [Suspect]
     Active Substance: PEMBROLIZUMAB
     Indication: NON-SMALL CELL LUNG CANCER
     Dosage: 200 MILLIGRAM, Q3W, ROUTE EXTRA-VASCULAR (EV)
     Dates: start: 20180219, end: 20190219

REACTIONS (2)
  - Incorrect route of product administration [Unknown]
  - Haemoptysis [Fatal]

NARRATIVE: CASE EVENT DATE: 20180219
